FAERS Safety Report 4548380-0 (Version None)
Quarter: 2004Q4

REPORT INFORMATION
  Report Type: 
  Country: None (occurrence: None)
  Receive Date: 20041227
  Receipt Date: 20041018
  Transmission Date: 20050328
  Serious: Yes (Hospitalization)
  Sender: FDA-Public Use
  Company Number: 04P-163-0273988-00

PATIENT
  Age: 84 Year
  Sex: Female
  Weight: 67.586 kg

DRUGS (9)
  1. HUMIRA [Suspect]
     Indication: RHEUMATOID ARTHRITIS
     Dosage: 40 MG, 1 IN 2 WK, SUBCUTANEOUS
     Route: 058
     Dates: start: 20040101, end: 20040908
  2. SALMETEROL XINAFOATE [Concomitant]
  3. COUMADIN [Concomitant]
  4. DILTIAZEM [Concomitant]
  5. POTASSIUM [Concomitant]
  6. LANSOPRAZOLE [Concomitant]
  7. FUROSEMIDE [Concomitant]
  8. RISEDRONATE SODIUM [Concomitant]
  9. CALCIUM GLUCONATE [Concomitant]

REACTIONS (1)
  - PNEUMONIA [None]
